FAERS Safety Report 12312722 (Version 1)
Quarter: 2016Q2

REPORT INFORMATION
  Report Type: Spontaneous
  Country: US (occurrence: US)
  Receive Date: 20160428
  Receipt Date: 20160428
  Transmission Date: 20160815
  Serious: No
  Sender: FDA-Public Use
  Company Number: US-TEVA-650169ACC

PATIENT
  Sex: Female
  Weight: 113.5 kg

DRUGS (2)
  1. PLAN B ONE-STEP [Suspect]
     Active Substance: LEVONORGESTREL
     Indication: POST COITAL CONTRACEPTION
  2. PLAN B ONE-STEP [Suspect]
     Active Substance: LEVONORGESTREL

REACTIONS (2)
  - Back pain [Recovered/Resolved]
  - Mood altered [Unknown]
